FAERS Safety Report 22066511 (Version 1)
Quarter: 2023Q1

REPORT INFORMATION
  Report Type: Spontaneous
  Country: CN (occurrence: CN)
  Receive Date: 20230306
  Receipt Date: 20230306
  Transmission Date: 20230417
  Serious: Yes (Other)
  Sender: FDA-Public Use
  Company Number: CN-009507513-2303CHN001563

PATIENT
  Age: 66 Year
  Sex: Female
  Weight: 56 kg

DRUGS (4)
  1. TEMODAL [Suspect]
     Active Substance: TEMOZOLOMIDE
     Indication: Glioblastoma
     Dosage: 100MG/D
     Route: 048
     Dates: start: 20221011, end: 20221118
  2. TEMODAL [Suspect]
     Active Substance: TEMOZOLOMIDE
     Dosage: 75 MILLIGRAM PER CUBIC METRE, QD
     Route: 048
     Dates: start: 20221011, end: 20221118
  3. TEMODAL [Suspect]
     Active Substance: TEMOZOLOMIDE
     Dosage: 150 MILLIGRAM PER CUBIC METRE, QD
     Route: 048
     Dates: start: 2022
  4. TEMODAL [Suspect]
     Active Substance: TEMOZOLOMIDE
     Dosage: 200 MILLIGRAM PER CUBIC METRE, QD
     Route: 048
     Dates: start: 2022, end: 2023

REACTIONS (4)
  - Intracranial pressure increased [Unknown]
  - Cardiovascular disorder [Unknown]
  - Underdose [Unknown]
  - Product use issue [Unknown]

NARRATIVE: CASE EVENT DATE: 20221001
